FAERS Safety Report 6139193-7 (Version None)
Quarter: 2009Q2

REPORT INFORMATION
  Report Type: 
  Country: None (occurrence: None)
  Receive Date: 20090401
  Receipt Date: 20090320
  Transmission Date: 20091009
  Serious: Yes (Other)
  Sender: FDA-Public Use
  Company Number: US-JNJFOC-20090300259

PATIENT
  Sex: Male
  Weight: 87 kg

DRUGS (6)
  1. REMICADE [Suspect]
     Indication: COLITIS ULCERATIVE
     Dosage: ADMINISTERED FOR THREE YEARS
     Route: 042
  2. COLAZOL [Concomitant]
     Indication: COLITIS ULCERATIVE
  3. CANASA [Concomitant]
     Indication: COLITIS ULCERATIVE
  4. PREDNISONE [Concomitant]
     Indication: COLITIS ULCERATIVE
  5. ZOCOR [Concomitant]
     Indication: BLOOD CHOLESTEROL
  6. LISINOPRIL [Concomitant]
     Indication: BLOOD PRESSURE

REACTIONS (1)
  - MYODESOPSIA [None]
